FAERS Safety Report 18353673 (Version 1)
Quarter: 2020Q4

REPORT INFORMATION
  Report Type: Spontaneous
  Country: US (occurrence: US)
  Receive Date: 20201006
  Receipt Date: 20201006
  Transmission Date: 20210114
  Serious: No
  Sender: FDA-Public Use
  Company Number: US-ROCHE-2360192

PATIENT
  Sex: Female

DRUGS (21)
  1. VITAMIN B6 [Concomitant]
     Active Substance: PYRIDOXINE HYDROCHLORIDE
  2. IMODIUM [Concomitant]
     Active Substance: LOPERAMIDE HYDROCHLORIDE
  3. OMEPRAZOLE. [Concomitant]
     Active Substance: OMEPRAZOLE
  4. METOPROLOL. [Concomitant]
     Active Substance: METOPROLOL
  5. LIDOCAINE. [Concomitant]
     Active Substance: LIDOCAINE
  6. ZELBORAF [Suspect]
     Active Substance: VEMURAFENIB
     Indication: COLON CANCER
     Route: 048
  7. PROTONIX [Concomitant]
     Active Substance: PANTOPRAZOLE SODIUM
  8. ONDANSETRON [Concomitant]
     Active Substance: ONDANSETRON
  9. KLOR-CON [Concomitant]
     Active Substance: POTASSIUM CHLORIDE
  10. LOMOTIL [Concomitant]
     Active Substance: ATROPINE SULFATE\DIPHENOXYLATE HYDROCHLORIDE
  11. ACYCLOVIR. [Concomitant]
     Active Substance: ACYCLOVIR
  12. HYDROCODONE BITARTRATE AND ACETAMINOPHEN [Concomitant]
     Active Substance: ACETAMINOPHEN\HYDROCODONE BITARTRATE
  13. AMLODIPINE [Concomitant]
     Active Substance: AMLODIPINE BESYLATE
  14. LOVASTATIN. [Concomitant]
     Active Substance: LOVASTATIN
  15. ELIQUIS [Concomitant]
     Active Substance: APIXABAN
  16. TYLENOL [Concomitant]
     Active Substance: ACETAMINOPHEN
  17. SUCRALFATE. [Concomitant]
     Active Substance: SUCRALFATE
  18. DOXYCYCLINE. [Concomitant]
     Active Substance: DOXYCYCLINE
  19. VITAMIN D3 [Concomitant]
     Active Substance: CHOLECALCIFEROL
  20. LORAZEPAM. [Concomitant]
     Active Substance: LORAZEPAM
  21. DEXAMETHASONE. [Concomitant]
     Active Substance: DEXAMETHASONE

REACTIONS (3)
  - Intentional product use issue [Unknown]
  - Off label use [Unknown]
  - No adverse event [Unknown]
